FAERS Safety Report 5133444-3 (Version None)
Quarter: 2006Q4

REPORT INFORMATION
  Report Type: 
  Country: None (occurrence: None)
  Receive Date: 20061024
  Receipt Date: 20061013
  Transmission Date: 20070319
  Serious: Yes (Hospitalization)
  Sender: FDA-Public Use
  Company Number: US-AMGEN-STX196876

PATIENT
  Sex: Female

DRUGS (2)
  1. ENBREL [Suspect]
     Indication: RHEUMATOID ARTHRITIS
     Route: 058
     Dates: start: 20021101
  2. METHOTREXATE SODIUM [Concomitant]
     Route: 065
     Dates: start: 19930101

REACTIONS (3)
  - FALL [None]
  - HERPES ZOSTER [None]
  - RIB FRACTURE [None]
